FAERS Safety Report 18480131 (Version 1)
Quarter: 2020Q4

REPORT INFORMATION
  Report Type: Spontaneous
  Country: US (occurrence: US)
  Receive Date: 20201109
  Receipt Date: 20201109
  Transmission Date: 20210114
  Serious: Yes (Hospitalization)
  Sender: FDA-Public Use
  Company Number: None

PATIENT
  Age: 59 Year
  Sex: Male

DRUGS (5)
  1. ALLOPURINOL-- [Concomitant]
  2. ONGLYZA [Concomitant]
     Active Substance: SAXAGLIPTIN HYDROCHLORIDE
  3. SUTENT [Suspect]
     Active Substance: SUNITINIB MALATE
     Indication: METASTASES TO KIDNEY
     Dosage: ?          OTHER FREQUENCY:QD X2 WK THN OFF 2;?
     Route: 048
     Dates: start: 20200928
  4. VITAMIN D3-- [Concomitant]
  5. SIMVASTATIN-- [Concomitant]

REACTIONS (1)
  - Myocardial infarction [None]
